FAERS Safety Report 6826324-6 (Version None)
Quarter: 2010Q3

REPORT INFORMATION
  Report Type: 
  Country: None (occurrence: None)
  Receive Date: 20100709
  Receipt Date: 20100706
  Transmission Date: 20110219
  Serious: Yes (Death)
  Sender: FDA-Public Use
  Company Number: PHHY2010US44247

PATIENT
  Sex: Male
  Weight: 63 kg

DRUGS (1)
  1. EXJADE [Suspect]
     Indication: NEOPLASM
     Dosage: 1250 MG, DAILY
     Route: 048
     Dates: start: 20091021

REACTIONS (1)
  - MYOCARDIAL INFARCTION [None]
